FAERS Safety Report 7990033-0 (Version None)
Quarter: 2011Q4

REPORT INFORMATION
  Report Type: 
  Country: None (occurrence: None)
  Receive Date: 20111219
  Receipt Date: 20110608
  Transmission Date: 20120403
  Serious: No
  Sender: FDA-Public Use
  Company Number: US-ASTRAZENECA-2011SE34975

PATIENT

DRUGS (1)
  1. CRESTOR [Suspect]
     Route: 048
     Dates: start: 20110503, end: 20110505

REACTIONS (6)
  - NAUSEA [None]
  - VIITH NERVE PARALYSIS [None]
  - MUSCULAR WEAKNESS [None]
  - HYPOAESTHESIA [None]
  - SWELLING FACE [None]
  - RASH [None]
